FAERS Safety Report 23086103 (Version 2)
Quarter: 2024Q1

REPORT INFORMATION
  Report Type: Spontaneous
  Country: US (occurrence: US)
  Receive Date: 20231019
  Receipt Date: 20240312
  Transmission Date: 20240410
  Serious: No
  Sender: FDA-Public Use
  Company Number: US-BEH-2023164382

PATIENT
  Sex: Female

DRUGS (1)
  1. HIZENTRA [Suspect]
     Active Substance: HUMAN IMMUNOGLOBULIN G
     Indication: Immunodeficiency common variable
     Dosage: 12 GRAM, QW
     Route: 058
     Dates: start: 201907

REACTIONS (5)
  - Joint swelling [Unknown]
  - Joint swelling [Unknown]
  - Fibromyalgia [Unknown]
  - Urinary tract infection [Unknown]
  - Sinusitis [Recovering/Resolving]
